FAERS Safety Report 4853391-1 (Version None)
Quarter: 2005Q4

REPORT INFORMATION
  Report Type: 
  Country: None (occurrence: None)
  Receive Date: 20051214
  Receipt Date: 20051005
  Transmission Date: 20060501
  Serious: Yes (Hospitalization, Other)
  Sender: FDA-Public Use
  Company Number: US-MERCK-0510USA04552

PATIENT
  Age: 73 Year
  Sex: Male
  Weight: 73 kg

DRUGS (1)
  1. VIOXX [Suspect]
     Indication: OSTEOARTHRITIS
     Route: 048
     Dates: start: 20020201, end: 20041001

REACTIONS (13)
  - AORTIC ANEURYSM [None]
  - ARTERIOSCLEROSIS [None]
  - BLINDNESS UNILATERAL [None]
  - BRONCHITIS CHRONIC [None]
  - CEREBRAL INFARCTION [None]
  - CORONARY ARTERY DISEASE [None]
  - DEPRESSION [None]
  - HYPERLIPIDAEMIA [None]
  - HYPERTENSION [None]
  - ISCHAEMIC CARDIOMYOPATHY [None]
  - LACUNAR INFARCTION [None]
  - RENAL FAILURE CHRONIC [None]
  - TRANSIENT ISCHAEMIC ATTACK [None]
